FAERS Safety Report 5799571-2 (Version None)
Quarter: 2008Q3

REPORT INFORMATION
  Report Type: 
  Country: None (occurrence: None)
  Receive Date: 20080701
  Receipt Date: 20080701
  Transmission Date: 20090109
  Serious: Yes (Other)
  Sender: FDA-Public Use
  Company Number: None

PATIENT
  Weight: 93.8946 kg

DRUGS (3)
  1. SEROQUEL [Suspect]
     Indication: BIPOLAR DISORDER
     Dosage: 1 TABLET NIGHTLY PO
     Route: 048
     Dates: start: 20080414, end: 20080612
  2. SEROQUEL [Suspect]
     Indication: DEPRESSION
     Dosage: 1 TABLET NIGHTLY PO
     Route: 048
     Dates: start: 20080414, end: 20080612
  3. SEROQUEL [Suspect]
     Indication: INSOMNIA
     Dosage: 1 TABLET NIGHTLY PO
     Route: 048
     Dates: start: 20080414, end: 20080612

REACTIONS (2)
  - ABDOMINAL DISTENSION [None]
  - WEIGHT INCREASED [None]
